FAERS Safety Report 13964328 (Version 1)
Quarter: 2017Q3

REPORT INFORMATION
  Report Type: Spontaneous
  Country: US (occurrence: US)
  Receive Date: 20170913
  Receipt Date: 20170913
  Transmission Date: 20171128
  Serious: Yes (Hospitalization)
  Sender: FDA-Public Use
  Company Number: US-WEST-WARD PHARMACEUTICALS CORP.-US-H14001-17-03332

PATIENT
  Age: 4 Year
  Sex: Female

DRUGS (2)
  1. METHOTREXATE. [Suspect]
     Active Substance: METHOTREXATE
     Indication: ACUTE LYMPHOCYTIC LEUKAEMIA
     Dosage: 125% DOSING (CYCLE 4 OF MAINTENANCE CHEMOTHERAPY)
     Route: 048
  2. MERCAPTOPURINE. [Suspect]
     Active Substance: MERCAPTOPURINE
     Indication: ACUTE LYMPHOCYTIC LEUKAEMIA
     Dosage: 150% DOSING (CYCLE 4 OF MAINTENANCE CHEMOTHERAPY)
     Route: 065

REACTIONS (6)
  - Hypoglycaemia [Recovered/Resolved]
  - Drug level above therapeutic [Recovered/Resolved]
  - Dermatitis bullous [Recovered/Resolved]
  - Perianal erythema [Recovered/Resolved]
  - Palmar-plantar erythrodysaesthesia syndrome [Recovered/Resolved]
  - Toxic skin eruption [Recovered/Resolved]
